FAERS Safety Report 15852214 (Version 1)
Quarter: 2019Q1

REPORT INFORMATION
  Report Type: Spontaneous
  Country: CA (occurrence: CA)
  Receive Date: 20190122
  Receipt Date: 20190122
  Transmission Date: 20190417
  Serious: Yes (Other)
  Sender: FDA-Public Use
  Company Number: CA-ROCHE-2249216

PATIENT
  Age: 48 Year
  Sex: Male

DRUGS (18)
  1. VENLAFAXINE [Concomitant]
     Active Substance: VENLAFAXINE HYDROCHLORIDE
     Indication: PRODUCT USED FOR UNKNOWN INDICATION
     Route: 065
  2. OMNARIS [Concomitant]
     Active Substance: CICLESONIDE
     Indication: PRODUCT USED FOR UNKNOWN INDICATION
     Dosage: 8 MONTHS
     Route: 065
  3. PREDNISONE. [Concomitant]
     Active Substance: PREDNISONE
     Dosage: 25 MG, QD (PAST 12 MONTHS,4 OCCASIONS)
     Route: 065
  4. PREDNISONE. [Concomitant]
     Active Substance: PREDNISONE
     Dosage: 10 MG, QD
     Route: 065
  5. PREDNISONE. [Concomitant]
     Active Substance: PREDNISONE
     Dosage: 2.5 UNK, UNK
     Route: 065
  6. NASONEX [Concomitant]
     Active Substance: MOMETASONE FUROATE
     Indication: PRODUCT USED FOR UNKNOWN INDICATION
     Dosage: 8 YEARS
     Route: 065
  7. OXYNEO [Concomitant]
     Active Substance: OXYCODONE
     Indication: PRODUCT USED FOR UNKNOWN INDICATION
     Route: 065
  8. HYDROXYZINE [Concomitant]
     Active Substance: HYDROXYZINE HYDROCHLORIDE
     Indication: PRODUCT USED FOR UNKNOWN INDICATION
     Dosage: (1 YEAR)
     Route: 065
  9. DOXEPIN [Concomitant]
     Active Substance: DOXEPIN
     Indication: PRODUCT USED FOR UNKNOWN INDICATION
     Route: 065
  10. SYMBICORT [Concomitant]
     Active Substance: BUDESONIDE\FORMOTEROL FUMARATE DIHYDRATE
     Indication: PRODUCT USED FOR UNKNOWN INDICATION
     Dosage: 200 UG, 2 PUFFS TWICE DAILY- 8 YEARS
     Route: 065
  11. XOLAIR [Suspect]
     Active Substance: OMALIZUMAB
     Indication: ASTHMA
     Route: 058
     Dates: start: 20131225
  12. TWYNSTA [Concomitant]
     Active Substance: AMLODIPINE BESYLATE\TELMISARTAN
     Indication: PRODUCT USED FOR UNKNOWN INDICATION
     Route: 065
  13. VENTOLINE [Concomitant]
     Active Substance: ALBUTEROL
     Indication: MIDDLE INSOMNIA
     Dosage: 100 UG, PRN, (2-3 TIMES A WEEK) - 8 YEARS
     Route: 065
  14. VENTOLINE [Concomitant]
     Active Substance: ALBUTEROL
     Dosage: ONCE OR TWICE PER WEEK
     Route: 065
  15. HYDROMORPH [Concomitant]
     Active Substance: HYDROMORPHONE
     Indication: PRODUCT USED FOR UNKNOWN INDICATION
     Dosage: PRN
     Route: 065
  16. VENTOLINE [Concomitant]
     Active Substance: ALBUTEROL
     Dosage: 0-4 TIMES A DAY
     Route: 065
  17. BUPROPION. [Concomitant]
     Active Substance: BUPROPION
     Indication: PRODUCT USED FOR UNKNOWN INDICATION
     Route: 065
  18. PREDNISONE. [Concomitant]
     Active Substance: PREDNISONE
     Indication: ASTHMA
     Dosage: 10 YEARS
     Route: 065

REACTIONS (16)
  - Renal disorder [Unknown]
  - Obstructive airways disorder [Unknown]
  - Headache [Unknown]
  - Middle insomnia [Unknown]
  - Eye haemorrhage [Not Recovered/Not Resolved]
  - Hypersensitivity [Unknown]
  - Lung disorder [Unknown]
  - Weight increased [Unknown]
  - Pupil fixed [Unknown]
  - Viral infection [Unknown]
  - Aneurysm [Unknown]
  - Exostosis of jaw [Recovered/Resolved]
  - Forced expiratory volume decreased [Unknown]
  - Eosinophilia [Unknown]
  - Asthma [Unknown]
  - Epistaxis [Unknown]

NARRATIVE: CASE EVENT DATE: 20140708
